FAERS Safety Report 8523632-8 (Version None)
Quarter: 2012Q3

REPORT INFORMATION
  Report Type: 
  Country: None (occurrence: None)
  Receive Date: 20120720
  Receipt Date: 20120710
  Transmission Date: 20120928
  Serious: Yes (Hospitalization)
  Sender: FDA-Public Use
  Company Number: JP-NOVOPROD-355817

PATIENT
  Age: 65 Year
  Sex: Male

DRUGS (4)
  1. INNOLET N CHU [Suspect]
     Indication: TYPE 2 DIABETES MELLITUS
     Dosage: UNK
     Route: 065
  2. INNOLET N CHU [Suspect]
     Dosage: 300 U, QD
     Route: 058
     Dates: start: 20091103, end: 20091103
  3. NOVORAPID CHU FLEXPEN [Suspect]
     Indication: TYPE 2 DIABETES MELLITUS
     Dosage: UNK
     Route: 065
  4. NOVORAPID CHU FLEXPEN [Suspect]
     Dosage: 300 U, QD
     Route: 058
     Dates: start: 20091103, end: 20091103

REACTIONS (3)
  - SUICIDE ATTEMPT [None]
  - INTENTIONAL OVERDOSE [None]
  - HYPOGLYCAEMIA [None]
